FAERS Safety Report 9830870 (Version 4)
Quarter: 2014Q1

REPORT INFORMATION
  Report Type: Spontaneous
  Country: NO (occurrence: NO)
  Receive Date: 20140120
  Receipt Date: 20140320
  Transmission Date: 20141002
  Serious: Yes (Other)
  Sender: FDA-Public Use
  Company Number: NO-JNJFOC-20140103057

PATIENT
  Age: 17 Year
  Sex: Female

DRUGS (9)
  1. DOXORUBICIN [Suspect]
     Indication: BONE CANCER METASTATIC
     Route: 042
  2. DOXORUBICIN [Suspect]
     Indication: BONE CANCER METASTATIC
     Route: 065
  3. CISPLATIN [Suspect]
     Indication: BONE CANCER METASTATIC
     Route: 065
  4. METHOTREXATE [Suspect]
     Indication: BONE CANCER METASTATIC
     Route: 065
  5. METHOTREXATE [Suspect]
     Indication: BONE CANCER METASTATIC
     Dosage: 12 G/M2/COURSE
     Route: 065
  6. IFEX [Suspect]
     Indication: BONE CANCER METASTATIC
     Dosage: 9 G/M2/COURSE
     Route: 065
  7. IFEX [Suspect]
     Indication: BONE CANCER METASTATIC
     Dosage: 14 G/M2/COURSE
     Route: 065
  8. IFEX [Suspect]
     Indication: BONE CANCER METASTATIC
     Dosage: 6 G/M2/COURSE
     Route: 065
  9. ETOPOSIDE [Suspect]
     Indication: BONE CANCER METASTATIC
     Route: 065

REACTIONS (5)
  - Lung disorder [Unknown]
  - Febrile neutropenia [Unknown]
  - Thrombocytopenia [Unknown]
  - Neoplasm progression [Unknown]
  - Off label use [Unknown]
